FAERS Safety Report 25660651 (Version 1)
Quarter: 2025Q3

REPORT INFORMATION
  Report Type: Spontaneous
  Country: US (occurrence: US)
  Receive Date: 20250808
  Receipt Date: 20250808
  Transmission Date: 20251020
  Serious: Yes (Other)
  Sender: JOHNSON AND JOHNSON
  Company Number: US-JNJFOC-20250800011

PATIENT
  Age: 60 Year
  Sex: Male

DRUGS (3)
  1. LAZERTINIB [Suspect]
     Active Substance: LAZERTINIB
     Indication: Non-small cell lung cancer
     Route: 048
  2. LAZERTINIB [Suspect]
     Active Substance: LAZERTINIB
     Route: 048
  3. AMIVANTAMAB [Suspect]
     Active Substance: AMIVANTAMAB
     Indication: Non-small cell lung cancer
     Route: 042

REACTIONS (4)
  - Skin toxicity [Unknown]
  - Pyrexia [Unknown]
  - Rash [Unknown]
  - Dermatitis acneiform [Unknown]

NARRATIVE: CASE EVENT DATE: 20250201
